FAERS Safety Report 12193956 (Version 1)
Quarter: 2016Q1

REPORT INFORMATION
  Report Type: Report from Study
  Country: US (occurrence: US)
  Receive Date: 20160321
  Receipt Date: 20160321
  Transmission Date: 20160526
  Serious: Yes (Other)
  Sender: FDA-Public Use
  Company Number: US-ROCHE-1710151

PATIENT
  Age: 47 Year
  Sex: Female

DRUGS (2)
  1. NUTROPIN [Suspect]
     Active Substance: SOMATROPIN
     Indication: HYPOPITUITARISM
     Route: 058
     Dates: end: 20160318
  2. NUTROPIN [Suspect]
     Active Substance: SOMATROPIN
     Indication: ADRENAL INSUFFICIENCY
     Route: 058
     Dates: start: 20160209

REACTIONS (12)
  - Weight increased [Unknown]
  - Eye pain [Unknown]
  - Headache [Not Recovered/Not Resolved]
  - Nail growth abnormal [Not Recovered/Not Resolved]
  - Nasopharyngitis [Not Recovered/Not Resolved]
  - Ocular discomfort [Not Recovered/Not Resolved]
  - Sleep disorder [Unknown]
  - Hair growth abnormal [Not Recovered/Not Resolved]
  - Insomnia [Unknown]
  - Visual acuity reduced [Unknown]
  - Nausea [Not Recovered/Not Resolved]
  - Vomiting [Not Recovered/Not Resolved]

NARRATIVE: CASE EVENT DATE: 20160211
